FAERS Safety Report 5394640-3 (Version None)
Quarter: 2007Q3

REPORT INFORMATION
  Report Type: 
  Country: None (occurrence: None)
  Receive Date: 20070720
  Receipt Date: 20070710
  Transmission Date: 20080115
  Serious: Yes (Other)
  Sender: FDA-Public Use
  Company Number: 2007US-08535

PATIENT
  Age: 35 Year
  Sex: Male

DRUGS (2)
  1. ISOTRETINOIN [Suspect]
     Indication: ACNE
     Dosage: 40 MG, BID, ORAL; 40 MG, QD, ORAL
     Route: 048
     Dates: end: 20070601
  2. ISOTRETINOIN [Suspect]
     Indication: ACNE
     Dosage: 40 MG, BID, ORAL; 40 MG, QD, ORAL
     Route: 048
     Dates: start: 20070605, end: 20070608

REACTIONS (1)
  - PSEUDOPORPHYRIA [None]
